FAERS Safety Report 24755425 (Version 1)
Quarter: 2024Q4

REPORT INFORMATION
  Report Type: Spontaneous
  Country: CN (occurrence: CN)
  Receive Date: 20241219
  Receipt Date: 20241219
  Transmission Date: 20250115
  Serious: Yes (Other)
  Sender: FRESENIUS KABI
  Company Number: CN-FreseniusKabi-FK202418848

PATIENT
  Age: 82 Year
  Sex: Male
  Weight: 45 kg

DRUGS (1)
  1. INTRALIPID [Suspect]
     Active Substance: EGG PHOSPHOLIPIDS\GLYCERIN\SOYBEAN OIL
     Indication: Supplementation therapy
     Dosage: FORM OF ADMINISTRATION: EMULSION INJECTION FOR INFUSION?TREATMENT STARTED ON 21-NOV-2024 AT 15:15?ON
     Route: 041
     Dates: start: 20241121, end: 20241129

REACTIONS (2)
  - Tremor [Recovering/Resolving]
  - Palpitations [Recovering/Resolving]

NARRATIVE: CASE EVENT DATE: 20241129
